FAERS Safety Report 21193452 (Version 1)
Quarter: 2022Q3

REPORT INFORMATION
  Report Type: Spontaneous
  Country: None (occurrence: US)
  Receive Date: 20220810
  Receipt Date: 20220810
  Transmission Date: 20221027
  Serious: Yes (Other)
  Sender: FDA-Public Use
  Company Number: US-Bio Products Laboratory Ltd-2131676

PATIENT
  Age: 73 Year
  Sex: Female

DRUGS (12)
  1. GAMMAPLEX [Suspect]
     Active Substance: HUMAN IMMUNOGLOBULIN G
     Route: 042
  2. EPIPEN [Concomitant]
     Active Substance: EPINEPHRINE
  3. BENADRYL [Concomitant]
     Active Substance: DIPHENHYDRAMINE HYDROCHLORIDE
  4. PANTOPRAZOLE [Concomitant]
     Active Substance: PANTOPRAZOLE
  5. METOCLOPRAMIDE [Concomitant]
     Active Substance: METOCLOPRAMIDE
  6. DULOXETINE [Concomitant]
     Active Substance: DULOXETINE
  7. IRBESARTAN [Concomitant]
     Active Substance: IRBESARTAN
  8. APAP [Concomitant]
     Active Substance: ACETAMINOPHEN
  9. ASCORBIC ACID [Concomitant]
     Active Substance: ASCORBIC ACID
  10. FERROUS SULFATE [Concomitant]
     Active Substance: FERROUS SULFATE
  11. OXYBUTYNIN. [Concomitant]
     Active Substance: OXYBUTYNIN CHLORIDE
  12. PERI-COLACE [Concomitant]
     Active Substance: CASANTHRANOL\DOCUSATE SODIUM

REACTIONS (7)
  - Dyspnoea [Unknown]
  - Infusion site erythema [Unknown]
  - Flushing [Unknown]
  - Rash erythematous [Unknown]
  - Blood pressure increased [Unknown]
  - Chest discomfort [Unknown]
  - Off label use [Unknown]

NARRATIVE: CASE EVENT DATE: 20220722
